FAERS Safety Report 25396978 (Version 1)
Quarter: 2025Q2

REPORT INFORMATION
  Report Type: Spontaneous
  Country: US (occurrence: None)
  Receive Date: 20250603
  Receipt Date: 20250603
  Transmission Date: 20250717
  Serious: No
  Sender: FDA-CTU
  Company Number: None

PATIENT
  Age: 57 Year
  Sex: Female

DRUGS (1)
  1. FUTIBATINIB [Suspect]
     Active Substance: FUTIBATINIB
     Indication: Cholangiocarcinoma
     Dosage: FREQUENCY : DAILY;?
     Route: 048
     Dates: start: 20250131, end: 20250222

REACTIONS (6)
  - Abdominal pain [None]
  - Vomiting [None]
  - Decreased appetite [None]
  - Liver function test increased [None]
  - Hypercalcaemia [None]
  - Biliary obstruction [None]

NARRATIVE: CASE EVENT DATE: 20250222
